FAERS Safety Report 24451946 (Version 2)
Quarter: 2024Q4

REPORT INFORMATION
  Report Type: Spontaneous
  Country: US (occurrence: US)
  Receive Date: 20241017
  Receipt Date: 20241031
  Transmission Date: 20250114
  Serious: Yes (Life-Threatening, Hospitalization)
  Sender: TEVA
  Company Number: US-TEVA-VS-3254107

PATIENT
  Age: 81 Year
  Sex: Male

DRUGS (4)
  1. METHYLPREDNISOLONE [Suspect]
     Active Substance: METHYLPREDNISOLONE
     Indication: Myocarditis
     Route: 065
  2. PREDNISONE [Suspect]
     Active Substance: PREDNISONE
     Indication: Myocarditis
     Route: 065
  3. PEMBROLIZUMAB [Suspect]
     Active Substance: PEMBROLIZUMAB
     Indication: Malignant melanoma stage III
     Dosage: INFUSION
     Route: 050
  4. IMMUNE GLOBULIN NOS [Concomitant]
     Active Substance: IMMUNE GLOBULIN NOS
     Indication: Myocarditis

REACTIONS (8)
  - Myocarditis [Recovering/Resolving]
  - Encephalopathy [Unknown]
  - Myositis [Unknown]
  - Diaphragm muscle weakness [Unknown]
  - Drug ineffective [Unknown]
  - Hypotonia [Recovering/Resolving]
  - Myasthenia gravis [Unknown]
  - Respiratory failure [Unknown]
